FAERS Safety Report 16249208 (Version 7)
Quarter: 2019Q3

REPORT INFORMATION
  Report Type: Spontaneous
  Country: US (occurrence: US)
  Receive Date: 20190429
  Receipt Date: 20190917
  Transmission Date: 20191004
  Serious: Yes (Hospitalization)
  Sender: FDA-Public Use
  Company Number: US-CELGENEUS-USA-20190408981

PATIENT
  Sex: Female

DRUGS (3)
  1. POMALYST [Suspect]
     Active Substance: POMALIDOMIDE
     Dosage: 2 MILLIGRAM
     Route: 048
     Dates: start: 201901
  2. POMALYST [Suspect]
     Active Substance: POMALIDOMIDE
     Indication: PLASMA CELL MYELOMA
     Dosage: 3 MILLIGRAM
     Route: 048
     Dates: start: 201812
  3. POMALYST [Suspect]
     Active Substance: POMALIDOMIDE
     Indication: PLASMA CELL MYELOMA RECURRENT
     Dosage: 4 MILLIGRAM
     Route: 048
     Dates: start: 201810

REACTIONS (12)
  - Listless [Unknown]
  - Dermal cyst [Unknown]
  - Gait disturbance [Unknown]
  - Dizziness [Unknown]
  - Kidney infection [Unknown]
  - Urticaria [Unknown]
  - Feeling hot [Unknown]
  - Speech disorder [Unknown]
  - Rash pruritic [Unknown]
  - Urinary tract infection [Unknown]
  - Pneumonia [Unknown]
  - Asthenia [Unknown]

NARRATIVE: CASE EVENT DATE: 2019
